FAERS Safety Report 19708181 (Version 1)
Quarter: 2021Q3

REPORT INFORMATION
  Report Type: Spontaneous
  Country: DE (occurrence: DE)
  Receive Date: 20210817
  Receipt Date: 20210817
  Transmission Date: 20211014
  Serious: Yes (Hospitalization, Other)
  Sender: FDA-Public Use
  Company Number: DE-MYLANLABS-2021M1051679

PATIENT
  Age: 96 Year
  Sex: Female
  Weight: 65 kg

DRUGS (5)
  1. ASPIRIN. [Concomitant]
     Active Substance: ASPIRIN
     Indication: CEREBROVASCULAR ACCIDENT PROPHYLAXIS
     Dosage: UNK (1?0?0 EINNAHME CA. 10 JAHRE)
     Dates: start: 2011
  2. CLOZAPINE. [Suspect]
     Active Substance: CLOZAPINE
     Indication: PRODUCT USED FOR UNKNOWN INDICATION
     Dosage: 33.5 MILLIGRAM, QD (12,5MG?6MG?25MG SEIT CA. 10 JAHREN)
     Dates: start: 2011, end: 202101
  3. CLOZAPIN NEURAXPHARM [Suspect]
     Active Substance: CLOZAPINE
     Indication: PRODUCT USED FOR UNKNOWN INDICATION
     Dosage: UNK
     Dates: start: 20210116
  4. MOVICOL [Concomitant]
     Active Substance: POLYETHYLENE GLYCOL 3350\POTASSIUM CHLORIDE\SODIUM BICARBONATE\SODIUM CHLORIDE
     Indication: DYSPEPSIA
     Dosage: 1 DOSAGE FORM, QD (0?0?1 DAUERMEDIKATION)
  5. KEPPRA [Concomitant]
     Active Substance: LEVETIRACETAM
     Indication: EPILEPSY
     Dosage: UNK
     Dates: start: 202101, end: 202101

REACTIONS (6)
  - Monoplegia [Unknown]
  - Brain stem ischaemia [Unknown]
  - Dysarthria [Unknown]
  - Altered state of consciousness [Unknown]
  - Pneumonia aspiration [Recovered/Resolved]
  - Dysphagia [Unknown]

NARRATIVE: CASE EVENT DATE: 202101
